FAERS Safety Report 5101377-4 (Version None)
Quarter: 2006Q3

REPORT INFORMATION
  Report Type: 
  Country: None (occurrence: None)
  Receive Date: 20060906
  Receipt Date: 20060821
  Transmission Date: 20061208
  Serious: Yes (Hospitalization, Other)
  Sender: FDA-Public Use
  Company Number: 2006105183

PATIENT
  Age: 63 Year
  Sex: Female

DRUGS (4)
  1. CETIRIZINE HCL [Suspect]
     Indication: FUNGAL SKIN INFECTION
  2. KETOCONAZOLE [Suspect]
     Indication: FUNGAL SKIN INFECTION
     Dosage: 400 MG
  3. ORAL ANTIDIABETICS (ORAL ANTIDIABETICS) [Concomitant]
  4. ANTIHYPERTENSIVES (ANTIHYPERTENSIVES) [Concomitant]

REACTIONS (8)
  - CORONARY ARTERY STENOSIS [None]
  - ELECTROCARDIOGRAM QT CORRECTED INTERVAL PROLONGED [None]
  - FALL [None]
  - LOSS OF CONSCIOUSNESS [None]
  - MYOCARDIAL ISCHAEMIA [None]
  - TORSADE DE POINTES [None]
  - VENTRICULAR EXTRASYSTOLES [None]
  - VENTRICULAR HYPERTROPHY [None]
